FAERS Safety Report 17085434 (Version 1)
Quarter: 2019Q4

REPORT INFORMATION
  Report Type: Spontaneous
  Country: US (occurrence: US)
  Receive Date: 20191031
  Receipt Date: 20191031
  Transmission Date: 20200122
  Serious: Yes (Other)
  Sender: FDA-Public Use
  Company Number: None

PATIENT
  Sex: Female

DRUGS (1)
  1. VIGABATRIN 500MG ACTAVIS PHARMA [Suspect]
     Active Substance: VIGABATRIN
     Indication: TUBEROUS SCLEROSIS COMPLEX
     Dosage: ?          OTHER FREQUENCY:3 QAM AND 2 QHS;?
     Route: 048
     Dates: start: 20151110

REACTIONS (1)
  - Hospitalisation [None]
